FAERS Safety Report 9815033 (Version 2)
Quarter: 2014Q2

REPORT INFORMATION
  Report Type: Report from Study
  Country: KR (occurrence: KR)
  Receive Date: 20140114
  Receipt Date: 20140408
  Transmission Date: 20141212
  Serious: Yes (Other)
  Sender: FDA-Public Use
  Company Number: KR-ROCHE-1330896

PATIENT
  Sex: 0

DRUGS (1)
  1. CAPECITABINE [Suspect]
     Indication: RECTAL CANCER
     Route: 048

REACTIONS (5)
  - Leukopenia [Unknown]
  - Anaemia [Unknown]
  - Decreased appetite [Unknown]
  - Ileus [Unknown]
  - Wound dehiscence [Unknown]
